FAERS Safety Report 13381997 (Version 1)
Quarter: 2017Q1

REPORT INFORMATION
  Report Type: Spontaneous
  Country: DE (occurrence: DE)
  Receive Date: 20170329
  Receipt Date: 20170329
  Transmission Date: 20170429
  Serious: Yes (Other)
  Sender: FDA-Public Use
  Company Number: PHHY2017DE042597

PATIENT
  Age: 1 Day
  Sex: Male
  Weight: 1.8 kg

DRUGS (3)
  1. EXFORGE HCT [Suspect]
     Active Substance: AMLODIPINE BESYLATE\HYDROCHLOROTHIAZIDE\VALSARTAN
     Indication: FOETAL EXPOSURE DURING PREGNANCY
     Dosage: MOTHER DOSE:1 DF (AMLODIPINE 5MG/DL, HYDROCHLOROTHIAZIDE 6.25MG/DL, VALSARTAN (80MG/DL), QD
     Route: 064
  2. CLOPIDOGREL ZENTIVA [Concomitant]
     Active Substance: CLOPIDOGREL BISULFATE
     Indication: FOETAL EXPOSURE DURING PREGNANCY
     Dosage: MOTHER DOSE: 75 MG/DL
     Route: 064
  3. FOLIO [Concomitant]
     Active Substance: FOLIC ACID
     Indication: FOETAL EXPOSURE DURING PREGNANCY
     Dosage: MOTHER DOSE: 0.4 MG/DL, QD
     Route: 064

REACTIONS (5)
  - Hypocalvaria [Not Recovered/Not Resolved]
  - Respiratory disorder neonatal [Recovered/Resolved]
  - Neonatal anuria [Recovered/Resolved]
  - Congenital inguinal hernia [Recovered/Resolved with Sequelae]
  - Renal failure neonatal [Unknown]

NARRATIVE: CASE EVENT DATE: 20161014
